FAERS Safety Report 4392778-0 (Version None)
Quarter: 2004Q3

REPORT INFORMATION
  Report Type: 
  Country: None (occurrence: None)
  Receive Date: 20040702
  Receipt Date: 20040315
  Transmission Date: 20050211
  Serious: Yes (Other)
  Sender: FDA-Public Use
  Company Number: 2004UW04944

PATIENT
  Age: 77 Year
  Sex: Female
  Weight: 72.5755 kg

DRUGS (10)
  1. CRESTOR [Suspect]
     Indication: BLOOD CHOLESTEROL INCREASED
     Dosage: 5 MG QD PO
     Route: 048
  2. DIOVAN [Concomitant]
  3. ASPIRIN [Concomitant]
  4. TOPROL-XL [Concomitant]
  5. NORVASC [Concomitant]
  6. CELEBREX [Concomitant]
  7. FOSAMAX [Concomitant]
  8. FORTEO [Concomitant]
  9. MAXIDEX [Concomitant]
  10. PRAVACID [Concomitant]

REACTIONS (2)
  - SKIN ODOUR ABNORMAL [None]
  - URINE ODOUR ABNORMAL [None]
